FAERS Safety Report 17318651 (Version 1)
Quarter: 2020Q1

REPORT INFORMATION
  Report Type: Spontaneous
  Country: US (occurrence: US)
  Receive Date: 20200124
  Receipt Date: 20200124
  Transmission Date: 20200409
  Serious: No
  Sender: FDA-Public Use
  Company Number: NVSC2020US016834

PATIENT
  Sex: Female

DRUGS (1)
  1. VIVELLE-DOT [Suspect]
     Active Substance: ESTRADIOL
     Indication: PRODUCT USED FOR UNKNOWN INDICATION
     Dosage: 0.025 MG(1 PATCH TWICE A WEEK)
     Route: 065

REACTIONS (5)
  - Osteoporosis [Unknown]
  - Product adhesion issue [Unknown]
  - Sinus disorder [Unknown]
  - Dust allergy [Unknown]
  - Influenza like illness [Unknown]
